FAERS Safety Report 4795413-2 (Version None)
Quarter: 2005Q3

REPORT INFORMATION
  Report Type: 
  Country: None (occurrence: None)
  Receive Date: 20050919
  Receipt Date: 20050627
  Transmission Date: 20060218
  Serious: Yes (Hospitalization)
  Sender: FDA-Public Use
  Company Number: US-JNJFOC-20050500895

PATIENT
  Age: 28 Year
  Sex: Female
  Weight: 125.1928 kg

DRUGS (3)
  1. ORTHO TRI-CYCLEN LO [Suspect]
     Indication: MENSTRUAL DISORDER
     Dosage: 1 DOSE(S), 1 IN 1 DAY, ORAL
     Route: 048
     Dates: start: 20040101, end: 20041201
  2. ORTHO TRI-CYCLEN LO [Suspect]
     Indication: MENSTRUATION IRREGULAR
     Dosage: 1 DOSE(S), 1 IN 1 DAY, ORAL
     Route: 048
     Dates: start: 20040101, end: 20041201
  3. GLUCOPHAGE [Concomitant]

REACTIONS (1)
  - MENORRHAGIA [None]
